FAERS Safety Report 13900229 (Version 1)
Quarter: 2017Q3

REPORT INFORMATION
  Report Type: Spontaneous
  Country: ES (occurrence: ES)
  Receive Date: 20170823
  Receipt Date: 20170823
  Transmission Date: 20171127
  Serious: Yes (Other)
  Sender: FDA-Public Use
  Company Number: ES-ALLERGAN-1735804US

PATIENT
  Age: 66 Year
  Sex: Male
  Weight: 108 kg

DRUGS (2)
  1. SILODOSIN - BP [Suspect]
     Active Substance: SILODOSIN
     Indication: GALLBLADDER DISORDER
  2. SILODOSIN - BP [Suspect]
     Active Substance: SILODOSIN
     Indication: PROSTATIC DISORDER
     Dosage: 8 MG, QD
     Route: 048
     Dates: start: 20170602

REACTIONS (3)
  - Off label use [Unknown]
  - Eye pruritus [Not Recovered/Not Resolved]
  - Blindness [Not Recovered/Not Resolved]

NARRATIVE: CASE EVENT DATE: 20170630
